FAERS Safety Report 10532245 (Version 20)
Quarter: 2015Q4

REPORT INFORMATION
  Report Type: Report from Study
  Country: DE (occurrence: KR)
  Receive Date: 20141021
  Receipt Date: 20151130
  Transmission Date: 20160304
  Serious: Yes (Hospitalization, Other)
  Sender: FDA-Public Use
  Company Number: DE-ACTELION-A-US2014-106852

PATIENT
  Age: 69 Year
  Sex: Female

DRUGS (1)
  1. VENTAVIS [Suspect]
     Active Substance: ILOPROST
     Indication: PULMONARY ARTERIAL HYPERTENSION
     Dosage: UNK UNK, 6/D
     Route: 055
     Dates: start: 20100521

REACTIONS (25)
  - Dizziness [Unknown]
  - Dyspnoea [Not Recovered/Not Resolved]
  - Poor quality sleep [Unknown]
  - Hypoaesthesia [Unknown]
  - Headache [Unknown]
  - Tinnitus [Unknown]
  - Urine output decreased [Unknown]
  - Palpitations [Not Recovered/Not Resolved]
  - Back pain [Unknown]
  - Swelling [Not Recovered/Not Resolved]
  - Decreased appetite [Not Recovered/Not Resolved]
  - Hypophagia [Not Recovered/Not Resolved]
  - Intervertebral disc protrusion [Unknown]
  - Pain in extremity [Unknown]
  - Muscular weakness [Not Recovered/Not Resolved]
  - Fatigue [Unknown]
  - Pruritus [Not Recovered/Not Resolved]
  - Off label use [Unknown]
  - Dizziness exertional [Not Recovered/Not Resolved]
  - Dyspnoea [Unknown]
  - Pruritus [Unknown]
  - Asthenia [Not Recovered/Not Resolved]
  - General physical health deterioration [Unknown]
  - Urticaria [Unknown]
  - Decreased appetite [Unknown]

NARRATIVE: CASE EVENT DATE: 201409
